FAERS Safety Report 5078111-X (Version None)
Quarter: 2006Q3

REPORT INFORMATION
  Report Type: 
  Country: None (occurrence: None)
  Receive Date: 20060811
  Receipt Date: 20060801
  Transmission Date: 20061208
  Serious: Yes (Hospitalization)
  Sender: FDA-Public Use
  Company Number: US-JNJFOC-20060603685

PATIENT
  Sex: Female
  Weight: 76.2 kg

DRUGS (5)
  1. REMICADE [Suspect]
     Route: 042
  2. REMICADE [Suspect]
     Route: 042
  3. REMICADE [Suspect]
     Route: 042
  4. REMICADE [Suspect]
     Indication: RHEUMATOID ARTHRITIS
     Route: 042
  5. ARAVA [Concomitant]
     Indication: RHEUMATOID ARTHRITIS

REACTIONS (3)
  - PERICARDIAL EFFUSION [None]
  - PERICARDITIS [None]
  - PNEUMONIA [None]
